FAERS Safety Report 6098623-X (Version None)
Quarter: 2009Q1

REPORT INFORMATION
  Report Type: 
  Country: None (occurrence: None)
  Receive Date: 20090302
  Receipt Date: 20090226
  Transmission Date: 20090719
  Serious: Yes (Death)
  Sender: FDA-Public Use
  Company Number: NL-ASTRAZENECA-2009AC00676

PATIENT
  Age: 59 Year
  Sex: Female
  Weight: 90 kg

DRUGS (4)
  1. SEROQUEL [Suspect]
     Indication: OBSESSIVE-COMPULSIVE DISORDER
     Dosage: 250MG
     Route: 048
     Dates: start: 20070629
  2. SERTRALINE [Concomitant]
     Route: 048
     Dates: start: 20070708
  3. DIOVAN HCT [Concomitant]
     Route: 048
  4. THYRAX [Concomitant]
     Route: 048

REACTIONS (1)
  - SUDDEN CARDIAC DEATH [None]
